FAERS Safety Report 11788777 (Version 1)
Quarter: 2015Q4

REPORT INFORMATION
  Report Type: Spontaneous
  Country: US (occurrence: None)
  Receive Date: 20151130
  Receipt Date: 20151130
  Transmission Date: 20160305
  Serious: No
  Sender: FDA-Public Use
  Company Number: None

PATIENT
  Age: 64 Year
  Sex: Female
  Weight: 53.52 kg

DRUGS (10)
  1. VITAMIN D [Concomitant]
     Active Substance: CHOLECALCIFEROL
  2. REQUIP [Concomitant]
     Active Substance: ROPINIROLE HYDROCHLORIDE
  3. TRAMADOL. [Concomitant]
     Active Substance: TRAMADOL
  4. GANAPENTIN [Concomitant]
  5. PROLIA [Suspect]
     Active Substance: DENOSUMAB
     Indication: OSTEOPOROSIS
     Dosage: INJECTION 6 MONTHS GIVEN INTO/UNDER THE SKIN
     Route: 058
     Dates: start: 20151012, end: 20151129
  6. CLONZAPAM [Concomitant]
  7. HYDROCODONE [Concomitant]
     Active Substance: HYDROCODONE
  8. SYNTHROID [Concomitant]
     Active Substance: LEVOTHYROXINE SODIUM
  9. CALCIUM [Concomitant]
     Active Substance: CALCIUM
  10. ALEVE [Concomitant]
     Active Substance: NAPROXEN SODIUM

REACTIONS (3)
  - Pain in extremity [None]
  - Condition aggravated [None]
  - Nerve compression [None]

NARRATIVE: CASE EVENT DATE: 20021014
